FAERS Safety Report 5097509-7 (Version None)
Quarter: 2006Q3

REPORT INFORMATION
  Report Type: 
  Country: None (occurrence: None)
  Receive Date: 20060901
  Receipt Date: 20060822
  Transmission Date: 20061208
  Serious: Yes (Other)
  Sender: FDA-Public Use
  Company Number: 14633

PATIENT
  Age: 58 Year
  Sex: Female

DRUGS (1)
  1. CARBOPLATIN [Suspect]
     Indication: OVARIAN CANCER
     Dosage: 480 MG IV
     Route: 042
     Dates: start: 20060630, end: 20060721

REACTIONS (3)
  - HYPERSENSITIVITY [None]
  - IDIOSYNCRATIC DRUG REACTION [None]
  - MUSCLE TIGHTNESS [None]
